FAERS Safety Report 5706656-5 (Version None)
Quarter: 2008Q2

REPORT INFORMATION
  Report Type: 
  Country: None (occurrence: None)
  Receive Date: 20080416
  Receipt Date: 20080410
  Transmission Date: 20081010
  Serious: Yes (Other)
  Sender: FDA-Public Use
  Company Number: JP-RANBAXY-2008RR-14323

PATIENT

DRUGS (9)
  1. ISOTRETINOIN [Suspect]
     Dosage: 120 MG, BID
     Route: 048
  2. ISOTRETINOIN [Suspect]
     Dosage: 10 MG, BID
     Route: 048
  3. NIFEDIPINE [Concomitant]
     Dosage: 0.5 MG, QD
     Route: 048
  4. VINCRISTINE [Concomitant]
     Indication: CHEMOTHERAPY
  5. CYCLOPHOSPHAMIDE [Concomitant]
     Indication: CHEMOTHERAPY
  6. DOXORUBICIN HCL [Concomitant]
     Indication: CHEMOTHERAPY
  7. CISPLATIN [Concomitant]
     Indication: CHEMOTHERAPY
  8. ETOPOSIDE [Concomitant]
     Indication: CHEMOTHERAPY
  9. MELPHALAN [Concomitant]
     Indication: CHEMOTHERAPY

REACTIONS (1)
  - HYPERCALCAEMIA [None]
